FAERS Safety Report 6702029-7 (Version None)
Quarter: 2010Q2

REPORT INFORMATION
  Report Type: 
  Country: None (occurrence: None)
  Receive Date: 20100429
  Receipt Date: 20100420
  Transmission Date: 20101027
  Serious: Yes (Other)
  Sender: FDA-Public Use
  Company Number: GB-PFIZER INC-2010050249

PATIENT
  Sex: Female

DRUGS (2)
  1. VFEND [Suspect]
     Indication: CANDIDA RETINITIS
     Dosage: 2 DF, 2X/DAY
     Route: 048
  2. VFEND [Suspect]
     Dosage: 1 DF, 2X/DAY
     Route: 048

REACTIONS (2)
  - SOMNOLENCE [None]
  - URINE OUTPUT DECREASED [None]
